FAERS Safety Report 14070015 (Version 1)
Quarter: 2017Q4

REPORT INFORMATION
  Report Type: Spontaneous
  Country: ES (occurrence: ES)
  Receive Date: 20171010
  Receipt Date: 20171010
  Transmission Date: 20180321
  Serious: Yes (Other)
  Sender: FDA-Public Use
  Company Number: ES-TEVA-813574ROM

PATIENT
  Sex: Male

DRUGS (2)
  1. TRASTUZUMAB. [Concomitant]
     Active Substance: TRASTUZUMAB
     Route: 065
     Dates: start: 201106
  2. CAPECITABINE. [Suspect]
     Active Substance: CAPECITABINE
     Indication: ADENOCARCINOMA GASTRIC
     Dosage: EVERY 12H ON DAYS 1-14 WITHIN 21-DAY CYCLES
     Route: 048
     Dates: start: 201106

REACTIONS (3)
  - Creatinine renal clearance decreased [Unknown]
  - Asthenia [Unknown]
  - Toxicity to various agents [Unknown]
